FAERS Safety Report 17015075 (Version 2)
Quarter: 2019Q4

REPORT INFORMATION
  Report Type: Spontaneous
  Country: CO (occurrence: CO)
  Receive Date: 20191111
  Receipt Date: 20191127
  Transmission Date: 20200122
  Serious: Yes (Hospitalization, Other)
  Sender: FDA-Public Use
  Company Number: NVSC2019CO026430

PATIENT
  Age: 58 Year
  Sex: Female
  Weight: 56 kg

DRUGS (5)
  1. CALCIUM [Concomitant]
     Active Substance: CALCIUM
     Indication: PRODUCT USED FOR UNKNOWN INDICATION
     Route: 065
  2. FLUOXETINE [Concomitant]
     Active Substance: FLUOXETINE HYDROCHLORIDE
     Indication: ANXIETY
     Dosage: 20 MG, Q24H
     Route: 048
     Dates: start: 2015
  3. VITAMIN E [Concomitant]
     Active Substance: .ALPHA.-TOCOPHEROL
     Indication: PRODUCT USED FOR UNKNOWN INDICATION
     Route: 065
  4. ACLASTA [Suspect]
     Active Substance: ZOLEDRONIC ACID
     Indication: OSTEOPOROSIS
     Dosage: 5 MG, Q12MO
     Route: 042
     Dates: start: 20191008
  5. ATORVASTATIN [Suspect]
     Active Substance: ATORVASTATIN
     Indication: HYPERLIPIDAEMIA
     Dosage: 10 MG, Q24H
     Route: 048
     Dates: start: 2013

REACTIONS (21)
  - Eye irritation [Unknown]
  - Conjunctival haemorrhage [Unknown]
  - Conjunctivitis [Unknown]
  - Foreign body sensation in eyes [Unknown]
  - Injection site erythema [Unknown]
  - Photophobia [Unknown]
  - Musculoskeletal disorder [Unknown]
  - Visual acuity reduced [Unknown]
  - Intraocular pressure increased [Unknown]
  - Chest pain [Unknown]
  - Eye swelling [Unknown]
  - Ocular hyperaemia [Unknown]
  - Eye pain [Unknown]
  - Eye pruritus [Unknown]
  - Malaise [Unknown]
  - Myalgia [Unknown]
  - Headache [Unknown]
  - Dyschromatopsia [Unknown]
  - Iritis [Unknown]
  - Eye inflammation [Unknown]
  - Diplopia [Unknown]

NARRATIVE: CASE EVENT DATE: 20191008
